FAERS Safety Report 21465196 (Version 1)
Quarter: 2022Q4

REPORT INFORMATION
  Report Type: Spontaneous
  Country: US (occurrence: US)
  Receive Date: 20221017
  Receipt Date: 20221017
  Transmission Date: 20230113
  Serious: No
  Sender: FDA-Public Use
  Company Number: US-BEH-2022150596

PATIENT
  Sex: Female

DRUGS (44)
  1. HIZENTRA [Suspect]
     Active Substance: HUMAN IMMUNOGLOBULIN G
     Indication: Immunodeficiency common variable
     Dosage: 20 GRAM, QW
     Route: 058
     Dates: start: 20171230
  2. TRAZODONE [Concomitant]
     Active Substance: TRAZODONE HYDROCHLORIDE
     Dosage: 50 MILLIGRAM
  3. VIVAGLOBIN [Concomitant]
     Active Substance: HUMAN IMMUNOGLOBULIN G
     Dosage: 160 UNK
  4. AMLODIPINE [Concomitant]
     Active Substance: AMLODIPINE BESYLATE
  5. AMOXICILLIN [Concomitant]
     Active Substance: AMOXICILLIN
  6. AZITHROMYCIN [Concomitant]
     Active Substance: AZITHROMYCIN
  7. B-COMPLEX [AMINOBENZOIC ACID;CALCIUM PANTOTHENATE;CYANOCOBALAMIN;NICOT [Concomitant]
  8. CHOLECALCIFEROL [Concomitant]
     Active Substance: CHOLECALCIFEROL
  9. CALCIUM [Concomitant]
     Active Substance: CALCIUM
  10. CLONAZEPAM [Concomitant]
     Active Substance: CLONAZEPAM
  11. CLONIDINE [Concomitant]
     Active Substance: CLONIDINE
  12. CLONIDINE [Concomitant]
     Active Substance: CLONIDINE
  13. COZAAR [Concomitant]
     Active Substance: LOSARTAN POTASSIUM
  14. CYCLOBENZAPRINE [Concomitant]
     Active Substance: CYCLOBENZAPRINE
  15. CYMBALTA [Concomitant]
     Active Substance: DULOXETINE HYDROCHLORIDE
  16. DIPHENHYDRAMINE [Concomitant]
     Active Substance: DIPHENHYDRAMINE
  17. DULOXETINE [Concomitant]
     Active Substance: DULOXETINE
  18. EPINEPHRINE [Concomitant]
     Active Substance: EPINEPHRINE
  19. ASCORBIC ACID [Concomitant]
     Active Substance: ASCORBIC ACID
  20. EVOXAC [Concomitant]
     Active Substance: CEVIMELINE HYDROCHLORIDE
  21. FUROSEMIDE [Concomitant]
     Active Substance: FUROSEMIDE
  22. FUROSEMIDE [Concomitant]
     Active Substance: FUROSEMIDE
  23. HYDROCODONE BITARTRATE AND ACETAMINOPHEN [Concomitant]
     Active Substance: ACETAMINOPHEN\HYDROCODONE BITARTRATE
  24. LABETALOL [Concomitant]
     Active Substance: LABETALOL\LABETALOL HYDROCHLORIDE
  25. LABETALOL [Concomitant]
     Active Substance: LABETALOL\LABETALOL HYDROCHLORIDE
  26. LIPITOR [Concomitant]
     Active Substance: ATORVASTATIN CALCIUM
  27. LIPITOR [Concomitant]
     Active Substance: ATORVASTATIN CALCIUM
  28. LISINOPRIL [Concomitant]
     Active Substance: LISINOPRIL
  29. LISINOPRIL [Concomitant]
     Active Substance: LISINOPRIL
  30. HYDROCHLOROTHIAZIDE\LOSARTAN POTASSIUM [Concomitant]
     Active Substance: HYDROCHLOROTHIAZIDE\LOSARTAN POTASSIUM
  31. LOVAZA [Concomitant]
     Active Substance: OMEGA-3-ACID ETHYL ESTERS
  32. MAXALT-MLT [Concomitant]
     Active Substance: RIZATRIPTAN BENZOATE
  33. NEXIUM [Concomitant]
     Active Substance: ESOMEPRAZOLE MAGNESIUM
  34. ONDANSETRON [Concomitant]
     Active Substance: ONDANSETRON
  35. PLAQUENIL [Concomitant]
     Active Substance: HYDROXYCHLOROQUINE SULFATE
  36. PREVACID [Concomitant]
     Active Substance: LANSOPRAZOLE
  37. ROPINIROLE [Concomitant]
     Active Substance: ROPINIROLE
  38. SAVELLA [Concomitant]
     Active Substance: MILNACIPRAN HYDROCHLORIDE
  39. SINGULAIR [Concomitant]
     Active Substance: MONTELUKAST SODIUM
  40. SODIUM CHLORIDE [Concomitant]
     Active Substance: SODIUM CHLORIDE
  41. SPIRONOLACTONE [Concomitant]
     Active Substance: SPIRONOLACTONE
  42. TACROLIMUS [Concomitant]
     Active Substance: TACROLIMUS
  43. TAZTIA XT [Concomitant]
     Active Substance: DILTIAZEM HYDROCHLORIDE
  44. TAZTIA XT [Concomitant]
     Active Substance: DILTIAZEM HYDROCHLORIDE

REACTIONS (2)
  - Ill-defined disorder [Unknown]
  - Product dose omission issue [Unknown]
